FAERS Safety Report 6223534-6 (Version None)
Quarter: 2009Q2

REPORT INFORMATION
  Report Type: 
  Country: None (occurrence: None)
  Receive Date: 20090610
  Receipt Date: 20090526
  Transmission Date: 20091009
  Serious: Yes (Other)
  Sender: FDA-Public Use
  Company Number: AVE_00490_2009

PATIENT
  Sex: Male

DRUGS (1)
  1. NICOTINE [Suspect]
     Indication: SMOKING CESSATION THERAPY
     Dosage: (21 MG QD TRANSDERMAL)
     Route: 062
     Dates: start: 20090520, end: 20090525

REACTIONS (4)
  - ANXIETY [None]
  - DEPRESSION [None]
  - INSOMNIA [None]
  - SUICIDAL IDEATION [None]
